FAERS Safety Report 5854124-2 (Version None)
Quarter: 2008Q3

REPORT INFORMATION
  Report Type: 
  Country: None (occurrence: None)
  Receive Date: 20080822
  Receipt Date: 20080820
  Transmission Date: 20090109
  Serious: Yes (Death)
  Sender: FDA-Public Use
  Company Number: CA-BRISTOL-MYERS SQUIBB COMPANY-14308118

PATIENT
  Age: 50 Year
  Sex: Female

DRUGS (5)
  1. SPRYCEL [Suspect]
     Indication: ACUTE LYMPHOCYTIC LEUKAEMIA
     Route: 048
     Dates: end: 20080708
  2. METFORMIN [Concomitant]
  3. METOPROLOL [Concomitant]
  4. PREVACID [Concomitant]
  5. COUMADIN [Concomitant]

REACTIONS (1)
  - DEATH [None]
